FAERS Safety Report 7639974-4 (Version None)
Quarter: 2011Q3

REPORT INFORMATION
  Report Type: 
  Country: None (occurrence: None)
  Receive Date: 20110727
  Receipt Date: 20110713
  Transmission Date: 20111222
  Serious: Yes (Hospitalization)
  Sender: FDA-Public Use
  Company Number: US-ROCHE-790051

PATIENT
  Age: 51 Year
  Sex: Female
  Weight: 79.9 kg

DRUGS (5)
  1. CISPLATIN [Suspect]
     Dosage: ON DAY 2, TOTAL DOSE : 142 MG, LAST DOSE: 21 JAN 2011
     Route: 033
     Dates: start: 20101007
  2. LOVENOX [Concomitant]
     Indication: PULMONARY EMBOLISM
     Dosage: DOSE WAS HELD
  3. PACLITAXEL [Suspect]
     Dosage: ON DAY 8, LAST DOSE:21 JAN 2011
     Route: 033
     Dates: start: 20101007
  4. BEVACIZUMAB [Suspect]
     Dosage: OVER 30-90 MIN ON DAY 1 BEGINNING WITH CYCLE 2, LAST DOSE:21 JAN 2011, TOTAL DOSE: 1199 MG
     Route: 042
     Dates: start: 20101007
  5. PACLITAXEL [Suspect]
     Dosage: OVER 3 HRS ON DAY 1
     Route: 042
     Dates: start: 20101007

REACTIONS (1)
  - HYPOMAGNESAEMIA [None]
